FAERS Safety Report 13564651 (Version 2)
Quarter: 2020Q1

REPORT INFORMATION
  Report Type: Report from Study
  Country: US (occurrence: US)
  Receive Date: 20170519
  Receipt Date: 20200304
  Transmission Date: 20200409
  Serious: Yes (Other)
  Sender: FDA-Public Use
  Company Number: US-UCBSA-2017019028

PATIENT
  Age: 56 Year
  Sex: Female

DRUGS (5)
  1. LEVETIRACETAM. [Suspect]
     Active Substance: LEVETIRACETAM
     Indication: EPILEPSY
     Dosage: 500 MILLIGRAM, 2X/DAY (BID)
     Dates: start: 2004, end: 2008
  2. TEGRETOL [Concomitant]
     Active Substance: CARBAMAZEPINE
     Indication: SEIZURE
  3. METHOCARBAMOL. [Concomitant]
     Active Substance: METHOCARBAMOL
     Indication: MUSCLE RELAXANT THERAPY
     Dosage: 750 MILLIGRAM, 4X/DAY (QID)
     Dates: start: 201306
  4. TRILEPTAL [Concomitant]
     Active Substance: OXCARBAZEPINE
     Indication: SEIZURE
  5. TRAMADOL. [Concomitant]
     Active Substance: TRAMADOL
     Indication: SEIZURE

REACTIONS (3)
  - Weight increased [Recovered/Resolved]
  - Adverse drug reaction [Unknown]
  - Anger [Recovered/Resolved]

NARRATIVE: CASE EVENT DATE: 200607
